FAERS Safety Report 6596572-1 (Version None)
Quarter: 2010Q1

REPORT INFORMATION
  Report Type: 
  Country: None (occurrence: None)
  Receive Date: 20100222
  Receipt Date: 20100222
  Transmission Date: 20100710
  Serious: Yes (Hospitalization)
  Sender: FDA-Public Use
  Company Number: None

PATIENT
  Sex: Female
  Weight: 47 kg

DRUGS (12)
  1. PEMETREXED [Suspect]
     Indication: NON-SMALL CELL LUNG CANCER
     Dosage: 400MG/M2 IV Q2 WEEKS
     Dates: start: 20100129
  2. GEMCITABINE [Suspect]
     Indication: NON-SMALL CELL LUNG CANCER
     Dosage: 1200MG/M2 Q2 WEEKS
     Dates: start: 20100129
  3. AVASTIN [Suspect]
     Indication: NON-SMALL CELL LUNG CANCER
     Dosage: 10MG/KG Q2 WEEKS
     Dates: start: 20100129
  4. MSSR [Concomitant]
  5. DILAUDID [Concomitant]
  6. COMPAZINE [Concomitant]
  7. FOLIC ACID [Concomitant]
  8. DOCUSATE [Concomitant]
  9. SENNA [Concomitant]
  10. XANAX [Concomitant]
  11. CIPRO [Concomitant]
  12. VITAMIN B SHOT [Concomitant]

REACTIONS (2)
  - DYSPHAGIA [None]
  - PULMONARY EMBOLISM [None]
